FAERS Safety Report 8017679-8 (Version None)
Quarter: 2011Q4

REPORT INFORMATION
  Report Type: 
  Country: None (occurrence: None)
  Receive Date: 20111229
  Receipt Date: 20111229
  Transmission Date: 20120403
  Serious: No
  Sender: FDA-Public Use
  Company Number: None

PATIENT
  Sex: Female

DRUGS (1)
  1. SIMPONI [Suspect]
     Dosage: 50 MG/0.5ML SC ONCE MONTHLY
     Route: 058

REACTIONS (1)
  - MENORRHAGIA [None]
